FAERS Safety Report 8574340-9 (Version None)
Quarter: 2012Q3

REPORT INFORMATION
  Report Type: 
  Country: None (occurrence: None)
  Receive Date: 20120806
  Receipt Date: 20120727
  Transmission Date: 20120928
  Serious: Yes (Hospitalization, Other)
  Sender: FDA-Public Use
  Company Number: US-ABBOTT-12P-163-0962608-00

PATIENT
  Sex: Female

DRUGS (3)
  1. HUMIRA [Suspect]
     Indication: CROHN'S DISEASE
     Route: 058
     Dates: start: 20090209
  2. AMBIEN [Concomitant]
     Indication: POOR QUALITY SLEEP
  3. PENTAZA [Concomitant]
     Indication: CROHN'S DISEASE

REACTIONS (5)
  - GENERALISED OEDEMA [None]
  - VAGINAL DISCHARGE [None]
  - NEUROPATHY PERIPHERAL [None]
  - ENTEROVESICAL FISTULA [None]
  - JOINT SWELLING [None]
